FAERS Safety Report 15494377 (Version 4)
Quarter: 2019Q1

REPORT INFORMATION
  Report Type: Spontaneous
  Country: US (occurrence: US)
  Receive Date: 20181012
  Receipt Date: 20190206
  Transmission Date: 20190417
  Serious: No
  Sender: FDA-Public Use
  Company Number: US-SA-2018SA278187

PATIENT
  Age: 62 Year
  Sex: Female
  Weight: 70.3 kg

DRUGS (5)
  1. PRALUENT [Suspect]
     Active Substance: ALIROCUMAB
     Indication: TYPE IIA HYPERLIPIDAEMIA
     Dosage: 75 MG, QM
     Route: 058
     Dates: start: 20180903, end: 20180903
  2. DIAZEPAM. [Concomitant]
     Active Substance: DIAZEPAM
  3. TIZANIDINE. [Concomitant]
     Active Substance: TIZANIDINE
  4. TRAMADOL. [Concomitant]
     Active Substance: TRAMADOL
  5. PRALUENT [Suspect]
     Active Substance: ALIROCUMAB
     Dosage: 75 MG, QOW

REACTIONS (5)
  - Injury associated with device [Unknown]
  - Unevaluable event [Unknown]
  - Wrong schedule [Unknown]
  - Product dose omission [Unknown]
  - Device use issue [Unknown]

NARRATIVE: CASE EVENT DATE: 20181003
